FAERS Safety Report 21459157 (Version 1)
Quarter: 2022Q4

REPORT INFORMATION
  Report Type: Spontaneous
  Country: BR (occurrence: BR)
  Receive Date: 20221014
  Receipt Date: 20221014
  Transmission Date: 20230113
  Serious: Yes (Hospitalization, Other)
  Sender: FDA-Public Use
  Company Number: BR-BRACCO-2022BR04350

PATIENT
  Age: 57 Year
  Sex: Female

DRUGS (1)
  1. PROHANCE [Suspect]
     Active Substance: GADOTERIDOL
     Indication: Magnetic resonance imaging head
     Dosage: UNK UNK, SINGLE
     Route: 042
     Dates: start: 20221006, end: 20221006

REACTIONS (2)
  - Oxygen saturation decreased [Unknown]
  - Partial seizures [Unknown]

NARRATIVE: CASE EVENT DATE: 20221006
